FAERS Safety Report 22888352 (Version 4)
Quarter: 2024Q1

REPORT INFORMATION
  Report Type: Spontaneous
  Country: US (occurrence: None)
  Receive Date: 20230831
  Receipt Date: 20240115
  Transmission Date: 20240410
  Serious: Yes (Death, Hospitalization)
  Sender: FDA-Public Use
  Company Number: US-FARMAPROD-202308-2519

PATIENT
  Age: 71 Year
  Sex: Male

DRUGS (17)
  1. OXERVATE [Suspect]
     Active Substance: CENEGERMIN-BKBJ
     Indication: Neurotrophic keratopathy
     Route: 047
     Dates: start: 20230804, end: 20231009
  2. OXERVATE [Suspect]
     Active Substance: CENEGERMIN-BKBJ
     Route: 047
     Dates: start: 20231218
  3. OXERVATE [Suspect]
     Active Substance: CENEGERMIN-BKBJ
  4. LISINOPRIL [Concomitant]
     Active Substance: LISINOPRIL
  5. AMLODIPINE [Concomitant]
     Active Substance: AMLODIPINE BESYLATE
  6. BLINK TEARS [Concomitant]
     Active Substance: POLYETHYLENE GLYCOL 400
  7. CALCIUM CARBONATE [Concomitant]
     Active Substance: CALCIUM CARBONATE
     Dosage: 200(500)MG
  8. CLOPIDOGREL [Concomitant]
     Active Substance: CLOPIDOGREL BISULFATE
  9. OLOPATADINE HYDROCHLORIDE [Concomitant]
     Active Substance: OLOPATADINE HYDROCHLORIDE
  10. LANTUS SOLOSTAR [Concomitant]
     Active Substance: INSULIN GLARGINE
     Dosage: 100/ML (3) INSULIN PEN
  11. EZETIMIBE [Concomitant]
     Active Substance: EZETIMIBE
  12. AMOXICILLIN [Concomitant]
     Active Substance: AMOXICILLIN
  13. AZATHIOPRINE [Concomitant]
     Active Substance: AZATHIOPRINE
  14. FAMOTIDINE [Concomitant]
     Active Substance: FAMOTIDINE
  15. PROCHLORPERAZINE MALEATE [Concomitant]
     Active Substance: PROCHLORPERAZINE MALEATE
  16. VICTOZA [Concomitant]
     Active Substance: LIRAGLUTIDE
     Dosage: 2-PAK 0.6 MG/0.1 PEN INJECTOR.
  17. HUMALOG [Concomitant]
     Active Substance: INSULIN LISPRO
     Dosage: KWIKPEN U-100 100/ML INSULIN PEN

REACTIONS (4)
  - Death [Fatal]
  - Vomiting [Recovered/Resolved]
  - Product use issue [Unknown]
  - Hypotension [Unknown]

NARRATIVE: CASE EVENT DATE: 20230819
